FAERS Safety Report 24287842 (Version 1)
Quarter: 2024Q3

REPORT INFORMATION
  Report Type: Spontaneous
  Country: GB (occurrence: GB)
  Receive Date: 20240905
  Receipt Date: 20240905
  Transmission Date: 20241017
  Serious: Yes (Hospitalization, Other)
  Sender: VERITY PHARMACEUTICALS
  Company Number: GB-VER-202400009

PATIENT
  Age: 42 Year
  Sex: Female
  Weight: 103 kg

DRUGS (1)
  1. TRIPTORELIN PAMOATE [Suspect]
     Active Substance: TRIPTORELIN PAMOATE
     Indication: Adverse drug reaction
     Route: 030
     Dates: start: 20240718

REACTIONS (1)
  - Bradycardia [Not Recovered/Not Resolved]

NARRATIVE: CASE EVENT DATE: 20240802
